FAERS Safety Report 6931595-1 (Version None)
Quarter: 2010Q3

REPORT INFORMATION
  Report Type: 
  Country: None (occurrence: None)
  Receive Date: 20100813
  Receipt Date: 20100505
  Transmission Date: 20110219
  Serious: No
  Sender: FDA-Public Use
  Company Number: 1000013624

PATIENT
  Age: 56 Year
  Sex: Female

DRUGS (6)
  1. SAVELLA [Suspect]
     Indication: FIBROMYALGIA
     Dosage: 12.5 MG (12.5 MG, 1 IN 1 D), ORAL, 25 MG (12.5 MG, 2 IN 1 D), ORAL
     Route: 048
     Dates: start: 20100429, end: 20100429
  2. SAVELLA [Suspect]
     Indication: NEUROPATHY PERIPHERAL
     Dosage: 12.5 MG (12.5 MG, 1 IN 1 D), ORAL, 25 MG (12.5 MG, 2 IN 1 D), ORAL
     Route: 048
     Dates: start: 20100429, end: 20100429
  3. SAVELLA [Suspect]
     Indication: FIBROMYALGIA
     Dosage: 50 MG (25 MG, 1 IN 1 D), ORAL
     Route: 048
     Dates: start: 20100502, end: 20100502
  4. SAVELLA [Suspect]
     Indication: NEUROPATHY PERIPHERAL
     Dosage: 50 MG (25 MG, 1 IN 1 D), ORAL
     Route: 048
     Dates: start: 20100502, end: 20100502
  5. AMBIEN [Concomitant]
  6. VICODIN [Concomitant]

REACTIONS (4)
  - HEADACHE [None]
  - MUSCULOSKELETAL PAIN [None]
  - NAUSEA [None]
  - VOMITING [None]
